FAERS Safety Report 7983146-0 (Version None)
Quarter: 2011Q4

REPORT INFORMATION
  Report Type: 
  Country: None (occurrence: None)
  Receive Date: 20111123
  Receipt Date: 20110908
  Transmission Date: 20120403
  Serious: No
  Sender: FDA-Public Use
  Company Number: 337602

PATIENT
  Age: 66 Year
  Sex: Female

DRUGS (1)
  1. VICTOZA [Suspect]
     Indication: OBESITY
     Dosage: , SUBCUTANEOUS
     Route: 058

REACTIONS (2)
  - ASTHENIA [None]
  - FATIGUE [None]
